FAERS Safety Report 18112841 (Version 1)
Quarter: 2020Q3

REPORT INFORMATION
  Report Type: Spontaneous
  Country: US (occurrence: US)
  Receive Date: 20200804
  Receipt Date: 20200804
  Transmission Date: 20201103
  Serious: Yes (Other)
  Sender: FDA-Public Use
  Company Number: None

PATIENT
  Age: 59 Year
  Sex: Female

DRUGS (4)
  1. ESCITALOPRAM [Concomitant]
     Active Substance: ESCITALOPRAM OXALATE
     Dates: start: 20200529
  2. NP THYROID [Suspect]
     Active Substance: LEVOTHYROXINE\LIOTHYRONINE
     Indication: HYPOTHYROIDISM
     Route: 048
  3. ALPRAZOLAM. [Concomitant]
     Active Substance: ALPRAZOLAM
     Dates: start: 20200601
  4. FAMOTIDINE. [Concomitant]
     Active Substance: FAMOTIDINE
     Dates: start: 20200110

REACTIONS (5)
  - Neck pain [None]
  - Recalled product administered [None]
  - Drug ineffective [None]
  - Muscle strain [None]
  - Fatigue [None]

NARRATIVE: CASE EVENT DATE: 20200803
